FAERS Safety Report 9297718 (Version 3)
Quarter: 2013Q2

REPORT INFORMATION
  Report Type: Spontaneous
  Country: US (occurrence: US)
  Receive Date: 20130520
  Receipt Date: 20130621
  Transmission Date: 20140414
  Serious: Yes (Other)
  Sender: FDA-Public Use
  Company Number: US-PFIZER INC-2013150523

PATIENT
  Age: 75 Year
  Sex: Female
  Weight: 45.81 kg

DRUGS (12)
  1. SUTENT [Suspect]
     Indication: RENAL CELL CARCINOMA
     Dosage: 50 MG DAILY, 4 WEEKS OFF 2 WEEKS
     Route: 048
     Dates: start: 20120501
  2. ATENOLOL [Concomitant]
     Dosage: UNK
  3. CALCIUM [Concomitant]
     Dosage: UNK
  4. COMPAZINE [Concomitant]
     Dosage: UNK
  5. FENTANYL [Concomitant]
     Dosage: UNK
  6. LIDODERM [Concomitant]
     Dosage: UNK
  7. LOMOTIL [Concomitant]
     Dosage: UNK
  8. NORVASC [Concomitant]
     Dosage: UNK
  9. OMEPRAZOLE [Concomitant]
     Dosage: UNK
  10. PERCOCET [Concomitant]
     Dosage: UNK
  11. COLACE [Concomitant]
     Dosage: UNK
  12. ZOFRAN [Concomitant]
     Dosage: UNK

REACTIONS (6)
  - Rash [Not Recovered/Not Resolved]
  - Purpura [Not Recovered/Not Resolved]
  - Acne [Not Recovered/Not Resolved]
  - Cyst [Not Recovered/Not Resolved]
  - Local swelling [Not Recovered/Not Resolved]
  - Erythema [Recovering/Resolving]
